FAERS Safety Report 8989670 (Version 2)
Quarter: 2013Q1

REPORT INFORMATION
  Report Type: Spontaneous
  Country: US (occurrence: US)
  Receive Date: 20121228
  Receipt Date: 20130116
  Transmission Date: 20140127
  Serious: No
  Sender: FDA-Public Use
  Company Number: US-009507513-1212USA009198

PATIENT
  Age: 56 Year
  Sex: 0

DRUGS (1)
  1. PEGINTRON [Suspect]
     Dosage: UNK
     Dates: start: 201203

REACTIONS (2)
  - Medical device complication [Unknown]
  - No adverse event [Unknown]
